FAERS Safety Report 26171142 (Version 1)
Quarter: 2025Q4

REPORT INFORMATION
  Report Type: Report from Study
  Country: US (occurrence: US)
  Receive Date: 20251217
  Receipt Date: 20251217
  Transmission Date: 20260117
  Serious: Yes (Death)
  Sender: TEVA
  Company Number: US-TEVA-VS-3403284

PATIENT
  Age: 68 Year
  Sex: Female

DRUGS (1)
  1. AUSTEDO [Suspect]
     Active Substance: DEUTETRABENAZINE
     Indication: Dyskinesia
     Route: 048
     Dates: start: 20200507

REACTIONS (1)
  - Death [Fatal]

NARRATIVE: CASE EVENT DATE: 20251210
